FAERS Safety Report 6691534-8 (Version None)
Quarter: 2010Q2

REPORT INFORMATION
  Report Type: 
  Country: None (occurrence: None)
  Receive Date: 20100422
  Receipt Date: 20100413
  Transmission Date: 20101027
  Serious: Yes (Hospitalization, Other)
  Sender: FDA-Public Use
  Company Number: BR-ASTRAZENECA-2010SE01677

PATIENT
  Age: 82 Year
  Sex: Female
  Weight: 69 kg

DRUGS (9)
  1. NEXIUM [Suspect]
     Indication: HIATUS HERNIA
     Route: 048
     Dates: start: 20070101
  2. NEXIUM [Suspect]
     Indication: OESOPHAGEAL STENOSIS
     Route: 048
     Dates: start: 20070101
  3. LEXOTAN [Concomitant]
     Indication: INSOMNIA
     Route: 048
     Dates: start: 19740101
  4. LASIX [Concomitant]
     Indication: FLUID RETENTION
     Dosage: 1/2 TABLET ONCE A DAY
     Route: 048
     Dates: start: 19880101
  5. PURAN T4 [Concomitant]
     Indication: HYPOTHYROIDISM
     Route: 048
     Dates: start: 19880101
  6. POTASSIUM [Concomitant]
     Indication: HYPOAESTHESIA
     Route: 048
     Dates: start: 19880101
  7. ANCORON [Concomitant]
     Indication: ARRHYTHMIA
     Dosage: BID
     Route: 048
     Dates: start: 20080201
  8. HYDRALAZINE HCL [Concomitant]
  9. SIMVASTATIN [Concomitant]

REACTIONS (14)
  - ABDOMINAL DISTENSION [None]
  - ABDOMINAL PAIN UPPER [None]
  - ARRHYTHMIA [None]
  - ASPIRATION [None]
  - BLOOD CHOLESTEROL INCREASED [None]
  - CARDIOVASCULAR DISORDER [None]
  - CHOLELITHIASIS [None]
  - COUGH [None]
  - DRUG DOSE OMISSION [None]
  - DYSPHONIA [None]
  - DYSPNOEA [None]
  - FATIGUE [None]
  - NEGATIVISM [None]
  - OEDEMA PERIPHERAL [None]
